FAERS Safety Report 9952393 (Version 1)
Quarter: 2014Q1

REPORT INFORMATION
  Report Type: Spontaneous
  Country: US (occurrence: US)
  Receive Date: 20140304
  Receipt Date: 20140304
  Transmission Date: 20141002
  Serious: No
  Sender: FDA-Public Use
  Company Number: US-ABBVIE-13P-163-1078594-00

PATIENT
  Age: 61 Year
  Sex: Female
  Weight: 90.8 kg

DRUGS (7)
  1. HUMIRA [Suspect]
     Indication: PSORIASIS
     Dates: start: 20130404, end: 20130404
  2. HUMIRA [Suspect]
     Indication: PSORIATIC ARTHROPATHY
  3. SYNTHROID [Concomitant]
     Indication: HYPOTHYROIDISM
  4. BANOS [Concomitant]
     Indication: SKIN DISORDER
  5. TAZORAC [Concomitant]
     Indication: NAIL DISORDER
  6. PREDNISONE [Concomitant]
     Indication: PRODUCT USED FOR UNKNOWN INDICATION
  7. PROAIR [Concomitant]
     Indication: ASTHMA

REACTIONS (17)
  - Feeling abnormal [Unknown]
  - Pyrexia [Unknown]
  - Feeling abnormal [Unknown]
  - Insomnia [Unknown]
  - Dysphonia [Not Recovered/Not Resolved]
  - Bone pain [Recovered/Resolved]
  - Bone pain [Unknown]
  - Pain [Unknown]
  - Erythema [Unknown]
  - Erythema [Unknown]
  - Rash pustular [Unknown]
  - Burning sensation [Unknown]
  - Erythema [Unknown]
  - Urticaria [Recovering/Resolving]
  - Headache [Not Recovered/Not Resolved]
  - Psoriasis [Unknown]
  - Pruritus [Unknown]
